FAERS Safety Report 16549883 (Version 2)
Quarter: 2019Q3

REPORT INFORMATION
  Report Type: Spontaneous
  Country: US (occurrence: US)
  Receive Date: 20190710
  Receipt Date: 20190727
  Transmission Date: 20191004
  Serious: No
  Sender: FDA-Public Use
  Company Number: US-JNJFOC-20190711687

PATIENT
  Age: 25 Year
  Sex: Female
  Weight: 59.02 kg

DRUGS (2)
  1. BUPROPION. [Concomitant]
     Active Substance: BUPROPION
     Indication: PRODUCT USED FOR UNKNOWN INDICATION
     Route: 065
  2. WOMENS ROGAINE UNSCENTED [Suspect]
     Active Substance: MINOXIDIL
     Indication: ALOPECIA
     Dosage: ABOUT A QUARTER SIZE AMOUNT
     Route: 061
     Dates: start: 20190101, end: 20190201

REACTIONS (4)
  - Eczema [Recovered/Resolved]
  - Off label use [Unknown]
  - Contraindicated product administered [Recovered/Resolved]
  - Product use in unapproved indication [Recovered/Resolved]

NARRATIVE: CASE EVENT DATE: 20190101
